FAERS Safety Report 7110833-9 (Version None)
Quarter: 2010Q4

REPORT INFORMATION
  Report Type: 
  Country: None (occurrence: None)
  Receive Date: 20101118
  Receipt Date: 20101115
  Transmission Date: 20110411
  Serious: Yes (Hospitalization)
  Sender: FDA-Public Use
  Company Number: US-BRISTOL-MYERS SQUIBB COMPANY-15304330

PATIENT
  Age: 64 Year
  Sex: Male
  Weight: 60 kg

DRUGS (8)
  1. ERBITUX [Suspect]
     Indication: NON-SMALL CELL LUNG CANCER
     Dosage: 400MG/M2 DAY 1 250MG/M2 DAY 8; LAST DOSE: 14-SEP-2010 2297MG:LAST DOSE: 10-OCT-2010
     Dates: start: 20100621
  2. CARBOPLATIN [Suspect]
     Indication: NON-SMALL CELL LUNG CANCER
     Dosage: AUC2+AUC6;LAST DOSE: 14SEP10 622MG:05OCT10. DOSE DECREASED ON14SEP10. 1262MG:05OCT10
     Dates: start: 20100621
  3. TAXOL [Suspect]
     Indication: NON-SMALL CELL LUNG CANCER
     Dosage: 45MG/M2 AND 200MG/M2;LAST DOSE: 14-SEP-2010 722MG LAST DOSE:05OCT10
     Dates: start: 20100621
  4. RADIATION THERAPY [Suspect]
     Indication: NON-SMALL CELL LUNG CANCER
     Dosage: 1 DF: 74 GY; NO.OF FRACTIONS: 37; ELAPSED DAYS: 52 EXTERNAL BEAM 3D
     Dates: end: 20100818
  5. DECADRON [Concomitant]
  6. ZOFRAN [Concomitant]
     Route: 042
  7. OMEPRAZOLE [Concomitant]
  8. COMPAZINE [Concomitant]

REACTIONS (22)
  - ASTHENIA [None]
  - DECREASED APPETITE [None]
  - DEHYDRATION [None]
  - DRUG INEFFECTIVE [None]
  - DRUG TOXICITY [None]
  - DYSPHAGIA [None]
  - FATIGUE [None]
  - GASTRIC ULCER [None]
  - LETHARGY [None]
  - LYMPHOPENIA [None]
  - MALAISE [None]
  - MUCOSAL INFLAMMATION [None]
  - MUSCULAR WEAKNESS [None]
  - NAUSEA [None]
  - NEUTROPHIL COUNT DECREASED [None]
  - OESOPHAGEAL PAIN [None]
  - OESOPHAGITIS [None]
  - PLATELET COUNT DECREASED [None]
  - STOMATITIS [None]
  - VOMITING [None]
  - WEIGHT DECREASED [None]
  - WHITE BLOOD CELL COUNT DECREASED [None]
